FAERS Safety Report 21867618 (Version 1)
Quarter: 2023Q1

REPORT INFORMATION
  Report Type: Spontaneous
  Country: US (occurrence: US)
  Receive Date: 20230116
  Receipt Date: 20230116
  Transmission Date: 20230417
  Serious: No
  Sender: FDA-Public Use
  Company Number: US-BRISTOL-MYERS SQUIBB COMPANY-2022-159741

PATIENT
  Age: 48 Year
  Sex: Male

DRUGS (1)
  1. ORENCIA [Suspect]
     Active Substance: ABATACEPT
     Indication: Rheumatoid arthritis
     Dosage: FREQUENCY- WEEKLY
     Route: 058
     Dates: start: 202212

REACTIONS (3)
  - Therapeutic response decreased [Unknown]
  - Pain [Unknown]
  - Malaise [Unknown]
